FAERS Safety Report 21253174 (Version 4)
Quarter: 2023Q4

REPORT INFORMATION
  Report Type: Report from Study
  Country: JP (occurrence: JP)
  Receive Date: 20220825
  Receipt Date: 20231010
  Transmission Date: 20240110
  Serious: Yes (Other)
  Sender: FDA-Public Use
  Company Number: JP-ASTELLAS-2022JP005438

PATIENT
  Age: 71 Year
  Sex: Male
  Weight: 57.5 kg

DRUGS (6)
  1. ENFORTUMAB VEDOTIN [Suspect]
     Active Substance: ENFORTUMAB VEDOTIN
     Indication: Metastatic carcinoma of the bladder
     Dosage: 73 MG (1.25MG/KG), 3 TIMES/4 WEEKS
     Route: 041
     Dates: start: 20220325, end: 20220408
  2. ENFORTUMAB VEDOTIN [Suspect]
     Active Substance: ENFORTUMAB VEDOTIN
     Dosage: 73 MG (1.25MG/KG), 3 TIMES/4 WEEKS
     Route: 041
     Dates: start: 20220425, end: 20220510
  3. ENFORTUMAB VEDOTIN [Suspect]
     Active Substance: ENFORTUMAB VEDOTIN
     Dosage: 73 MG (1.25MG/KG), 3 TIMES/4 WEEKS
     Route: 041
     Dates: start: 20220531, end: 20220712
  4. AVELUMAB [Concomitant]
     Active Substance: AVELUMAB
     Indication: Transitional cell carcinoma
     Dosage: UNK UNK, UNKNOWN FREQ.
     Route: 065
     Dates: start: 20220222, end: 20220308
  5. RINDERON VG [Concomitant]
     Active Substance: BETAMETHASONE VALERATE\GENTAMICIN SULFATE
     Indication: Dry skin
     Dosage: UNK UNK, UNKNOWN FREQ.
     Route: 050
  6. AMENAMEVIR [Concomitant]
     Active Substance: AMENAMEVIR
     Indication: Herpes zoster
     Route: 065
     Dates: start: 20220622, end: 20220629

REACTIONS (6)
  - Malignant neoplasm progression [Unknown]
  - Dry skin [Recovered/Resolved]
  - Taste disorder [Recovered/Resolved]
  - Herpes zoster [Recovered/Resolved]
  - Rash [Recovering/Resolving]
  - Alopecia [Recovered/Resolved]

NARRATIVE: CASE EVENT DATE: 20220401
